FAERS Safety Report 5050581-2 (Version None)
Quarter: 2006Q3

REPORT INFORMATION
  Report Type: 
  Country: None (occurrence: None)
  Receive Date: 20060713
  Receipt Date: 20060630
  Transmission Date: 20061208
  Serious: Yes (Other)
  Sender: FDA-Public Use
  Company Number: JP-JPN-A200602483

PATIENT
  Age: 24 Year
  Sex: Female

DRUGS (1)
  1. IMIGRAN [Suspect]
     Route: 048

REACTIONS (2)
  - HEMIPLEGIA [None]
  - HYPOAESTHESIA [None]
